FAERS Safety Report 16037013 (Version 1)
Quarter: 2019Q1

REPORT INFORMATION
  Report Type: Spontaneous
  Country: DK (occurrence: DK)
  Receive Date: 20190305
  Receipt Date: 20190305
  Transmission Date: 20190418
  Serious: Yes (Hospitalization)
  Sender: FDA-Public Use
  Company Number: DK-B.I. PHARMACEUTICALS,INC./RIDGEFIELD-2019-12-000720

PATIENT
  Age: 74 Year
  Sex: Male

DRUGS (11)
  1. PRADAXA [Suspect]
     Active Substance: DABIGATRAN ETEXILATE MESYLATE
     Indication: ATRIAL FIBRILLATION
     Dosage: PAUSED 3 DAYS PRIOR TO THE RADICAL CYSTECTOMY. AGAIN ON 09-DEC-2018 AND RE-STARTET...
     Route: 048
     Dates: start: 2012
  2. EPLERENON MEDICAL VALLEY [Concomitant]
     Indication: POLYURIA
     Dosage: STYRKE: 25 MG., EXACT START DATE IS UNKNOWN, BUT AT LEAST SINCE 16-AUG-2016
     Route: 048
  3. OMEPRAZOL ACTAVIS [Concomitant]
     Active Substance: OMEPRAZOLE
     Indication: GASTROOESOPHAGEAL REFLUX DISEASE
     Dosage: STYRKE: 20 MG.,  GASTRO-RESISTANT CAPSULE, HARD
     Route: 048
     Dates: start: 20160812
  4. FLUCONAZOLE. [Concomitant]
     Active Substance: FLUCONAZOLE
     Indication: ORAL FUNGAL INFECTION
     Dosage: STRYKE: 50 MG
     Route: 048
     Dates: start: 20181211, end: 20190217
  5. ATORVASTATIN ACTAVIS [Concomitant]
     Active Substance: ATORVASTATIN
     Indication: HYPERCHOLESTEROLAEMIA
     Dosage: STYRKE: 40 MG
     Route: 048
     Dates: start: 20160406
  6. ENALAPRIL ORION [Concomitant]
     Indication: CARDIAC DISORDER
     Dosage: STYRKE: 10 MG.
     Route: 048
     Dates: start: 20170925
  7. BISOPROLOL KRKA [Concomitant]
     Active Substance: BISOPROLOL FUMARATE
     Indication: BLOOD PRESSURE MEASUREMENT
     Dosage: STYRKE: 5 MG.
     Route: 048
     Dates: start: 20160202
  8. PINEX [Concomitant]
     Indication: PAIN
     Dosage: STRENGTH: 500 MG. DOSE: 2 TABLETS WHEN NEEDED, MAXIMUM 4 TIMES DAILY AS REQUIRED
     Route: 048
     Dates: start: 20130110
  9. DIGOXIN DAK [Concomitant]
     Active Substance: DIGOXIN
     Indication: CARDIAC DISORDER
     Route: 048
     Dates: start: 20120209
  10. ALLOPURINOL. [Concomitant]
     Active Substance: ALLOPURINOL
     Indication: GOUT
     Dosage: STYRKE: 300 MG.
     Route: 048
     Dates: start: 20141126
  11. ENTOCORT [Concomitant]
     Active Substance: BUDESONIDE
     Indication: CROHN^S DISEASE
     Dosage: DOSE 1 CAPSULE WHEN NEEDED, MAXIMUM 2 TIMES DAILY , AS REQUIRED, MODIFIED-RELEASE CAPSULE, HARD
     Route: 048
     Dates: start: 20141124

REACTIONS (2)
  - Surgery [Recovered/Resolved]
  - Post procedural haemorrhage [Recovered/Resolved]

NARRATIVE: CASE EVENT DATE: 20181208
